FAERS Safety Report 8921296 (Version 4)
Quarter: 2013Q3

REPORT INFORMATION
  Report Type: Report from Study
  Country: US (occurrence: US)
  Receive Date: 20121121
  Receipt Date: 20130815
  Transmission Date: 20140515
  Serious: Yes (Hospitalization, Other)
  Sender: FDA-Public Use
  Company Number: US-ACTELION-A-NJ2012-63919

PATIENT
  Age: 65 Year
  Sex: Female

DRUGS (3)
  1. TRACLEER [Suspect]
     Indication: PULMONARY ARTERIAL HYPERTENSION
     Dosage: UNK
     Route: 048
     Dates: start: 200508
  2. REMODULIN [Concomitant]
  3. ADCIRCA [Concomitant]

REACTIONS (9)
  - Breast lump removal [Recovering/Resolving]
  - Pleomorphic adenoma [Recovering/Resolving]
  - Parotidectomy [Recovering/Resolving]
  - Papilloma [Recovering/Resolving]
  - Cerebrovascular accident [Not Recovered/Not Resolved]
  - Hypoaesthesia [Not Recovered/Not Resolved]
  - Dizziness [Not Recovered/Not Resolved]
  - Diarrhoea [Unknown]
  - Flushing [Unknown]
